FAERS Safety Report 24091319 (Version 2)
Quarter: 2024Q3

REPORT INFORMATION
  Report Type: Spontaneous
  Country: US (occurrence: US)
  Receive Date: 20240715
  Receipt Date: 20240807
  Transmission Date: 20241016
  Serious: Yes (Other)
  Sender: PAREXEL
  Company Number: US-BELCHER PHARMACEUTICALS, LLC-2024US002232

PATIENT

DRUGS (1)
  1. SEMAGLUTIDE [Suspect]
     Active Substance: SEMAGLUTIDE
     Indication: Product used for unknown indication
     Dosage: 5MG/2ML (2.5MG/ML), 53 UNITS
     Route: 065
     Dates: start: 20240628

REACTIONS (2)
  - Nausea [Recovered/Resolved]
  - Accidental overdose [Unknown]

NARRATIVE: CASE EVENT DATE: 20240628
